FAERS Safety Report 9337617 (Version 1)
Quarter: 2013Q2

REPORT INFORMATION
  Report Type: Report from Study
  Country: BR (occurrence: BR)
  Receive Date: 20130607
  Receipt Date: 20130607
  Transmission Date: 20140414
  Serious: Yes (Other)
  Sender: FDA-Public Use
  Company Number: PHHY2013BR024042

PATIENT
  Sex: Male

DRUGS (2)
  1. RITALINA [Suspect]
     Indication: ATTENTION DEFICIT/HYPERACTIVITY DISORDER
     Dosage: ONE CAPSULE (10MG) IN THE MORNING
     Dates: end: 2011
  2. RITALIN LA [Suspect]
     Indication: ATTENTION DEFICIT/HYPERACTIVITY DISORDER
     Dosage: ONE CAPSULE (30MG) IN THE MORNING
     Dates: start: 2012, end: 2012

REACTIONS (3)
  - Depression [Recovered/Resolved]
  - Educational problem [Recovered/Resolved]
  - Insomnia [Recovered/Resolved]
